FAERS Safety Report 8773176 (Version 1)
Quarter: 2012Q4

REPORT INFORMATION
  Report Type: Report from Study
  Country: CN (occurrence: CN)
  Receive Date: 20120907
  Receipt Date: 20120907
  Transmission Date: 20130627
  Serious: Yes (Life-Threatening, Hospitalization)
  Sender: FDA-Public Use
  Company Number: CN-BRISTOL-MYERS SQUIBB COMPANY-16914939

PATIENT
  Age: 49 Year
  Sex: Male
  Weight: 63 kg

DRUGS (6)
  1. PACLITAXEL [Suspect]
     Indication: NON-SMALL CELL LUNG CANCER
     Dosage: recent inf:08aug12
     Route: 042
     Dates: start: 20120418
  2. CARBOPLATIN [Suspect]
     Indication: NON-SMALL CELL LUNG CANCER
     Dosage: recent inf:08Aug12
     Route: 042
     Dates: start: 20120418
  3. BLINDED: BEVACIZUMAB [Suspect]
     Indication: NON-SMALL CELL LUNG CANCER
     Dosage: recent inf:08Aug12
     Route: 042
     Dates: start: 20120418
  4. BLINDED: PLACEBO [Suspect]
     Indication: NON-SMALL CELL LUNG CANCER
     Dosage: recent inf:08Aug12
     Route: 042
     Dates: start: 20120418
  5. LAMIVUDINE [Concomitant]
     Indication: HEPATITIS B
     Dates: start: 20120411
  6. ADEFOVIR DIPIVOXIL [Concomitant]
     Indication: HEPATITIS B
     Dates: start: 20120508

REACTIONS (1)
  - Dyspnoea [Unknown]
